FAERS Safety Report 11549135 (Version 1)
Quarter: 2015Q3

REPORT INFORMATION
  Report Type: Spontaneous
  Country: US (occurrence: US)
  Receive Date: 20150924
  Receipt Date: 20150924
  Transmission Date: 20151125
  Serious: Yes (Hospitalization)
  Sender: FDA-Public Use
  Company Number: US-INCYTE CORPORATION-2015IN002773

PATIENT
  Age: 71 Year
  Sex: Female

DRUGS (9)
  1. NEURONTIN [Concomitant]
     Active Substance: GABAPENTIN
  2. PLAVIX [Concomitant]
     Active Substance: CLOPIDOGREL BISULFATE
  3. PROCRIT [Concomitant]
     Active Substance: ERYTHROPOIETIN
  4. JAKAFI [Suspect]
     Active Substance: RUXOLITINIB
     Indication: MYELOFIBROSIS
     Dosage: 25 MG, QD 10MG IN AM, 15 MG IN PM
     Route: 048
  5. CARVEDILOL. [Concomitant]
     Active Substance: CARVEDILOL
  6. COUMADIN [Concomitant]
     Active Substance: WARFARIN SODIUM
  7. ASPIRIN. [Concomitant]
     Active Substance: ASPIRIN
  8. BENICAR [Concomitant]
     Active Substance: OLMESARTAN MEDOXOMIL
  9. PROCARDIA [Concomitant]
     Active Substance: NIFEDIPINE

REACTIONS (1)
  - Haemoglobin decreased [Unknown]

NARRATIVE: CASE EVENT DATE: 20150608
